FAERS Safety Report 5449745-5 (Version None)
Quarter: 2007Q3

REPORT INFORMATION
  Report Type: 
  Country: None (occurrence: None)
  Receive Date: 20070910
  Receipt Date: 20070829
  Transmission Date: 20080115
  Serious: Yes (Death, Hospitalization)
  Sender: FDA-Public Use
  Company Number: GXKR2007IN07470

PATIENT
  Age: 64 Year
  Sex: Male

DRUGS (2)
  1. PREDNISOLONE [Suspect]
     Indication: EOSINOPHILIA
     Dosage: 30 MG, QD, ORAL
     Route: 048
  2. OMEPRAZOLE [Concomitant]

REACTIONS (10)
  - BLOOD CULTURE POSITIVE [None]
  - CONFUSIONAL STATE [None]
  - ESCHERICHIA INFECTION [None]
  - HYPOTENSION [None]
  - INTENSIVE CARE [None]
  - MULTI-ORGAN FAILURE [None]
  - PYREXIA [None]
  - SEPSIS [None]
  - STRONGYLOIDIASIS [None]
  - SUPERINFECTION [None]
